FAERS Safety Report 9249833 (Version 2)
Quarter: 2013Q2

REPORT INFORMATION
  Report Type: Report from Study
  Country: US (occurrence: US)
  Receive Date: 20130423
  Receipt Date: 20130529
  Transmission Date: 20140414
  Serious: Yes (Other)
  Sender: FDA-Public Use
  Company Number: PHEH2013US008767

PATIENT
  Age: 66 Year
  Sex: Male
  Weight: 75.4 kg

DRUGS (12)
  1. AFINITOR [Suspect]
     Indication: NON-HODGKIN^S LYMPHOMA
     Dosage: 5 MG, DAILY
     Dates: start: 20110302
  2. ALLOPURINOL [Concomitant]
  3. LISINOPRIL [Concomitant]
  4. ASPIRIN [Concomitant]
  5. METOPROLOL TARTRATE [Concomitant]
  6. CLONAZEPAM [Concomitant]
  7. SANDOSTATIN [Concomitant]
  8. VITAMIN B [Concomitant]
  9. VITAMIN D [Concomitant]
  10. MULTIVITAMIN//VITAMINS NOS [Concomitant]
  11. PROBIOTICS [Concomitant]
  12. SAW PALMETTO [Concomitant]

REACTIONS (1)
  - Macular degeneration [Not Recovered/Not Resolved]
